FAERS Safety Report 17668579 (Version 2)
Quarter: 2020Q2

REPORT INFORMATION
  Report Type: Spontaneous
  Country: US (occurrence: US)
  Receive Date: 20200415
  Receipt Date: 20200504
  Transmission Date: 20200713
  Serious: No
  Sender: FDA-Public Use
  Company Number: US-APOTEX-2020AP009011

PATIENT
  Age: 57 Year
  Sex: Female

DRUGS (2)
  1. HABITROL [Suspect]
     Active Substance: NICOTINE
     Indication: SMOKING CESSATION THERAPY
     Route: 065
  2. NICOTINE TRANSDERMAL SYSTEM [Suspect]
     Active Substance: NICOTINE
     Indication: SMOKING CESSATION THERAPY
     Dosage: UNK
     Route: 065

REACTIONS (4)
  - Condition aggravated [Unknown]
  - Stress [Unknown]
  - General physical health deterioration [Unknown]
  - Drug ineffective [Unknown]
